FAERS Safety Report 8690788 (Version 3)
Quarter: 2013Q4

REPORT INFORMATION
  Report Type: Spontaneous
  Country: US (occurrence: US)
  Receive Date: 20120728
  Receipt Date: 20131031
  Transmission Date: 20140711
  Serious: No
  Sender: FDA-Public Use
  Company Number: US-009507513-2012SP032552

PATIENT
  Age: 68 Year
  Sex: Female

DRUGS (3)
  1. PROVENTIL [Suspect]
     Indication: ASTHMA
     Dosage: 2 DF, Q4H
     Route: 055
     Dates: start: 2008
  2. ADVAIR [Concomitant]
  3. ASPIRIN [Concomitant]

REACTIONS (2)
  - Wheezing [Recovering/Resolving]
  - Chest discomfort [Recovering/Resolving]
